FAERS Safety Report 8887065 (Version 1)
Quarter: 2012Q4

REPORT INFORMATION
  Report Type: 
  Country: US (occurrence: US)
  Receive Date: 20121101
  Receipt Date: 20121101
  Transmission Date: 20130627
  Serious: Yes (Hospitalization)
  Sender: FDA-Public Use
  Company Number: PHHY2012US097095

PATIENT
  Age: 50 Year
  Sex: Male

DRUGS (3)
  1. HEPARIN [Suspect]
     Dosage: 2000 IU, UNK
     Route: 040
  2. HEPARIN [Suspect]
     Dosage: 1000 IU/h, UNK
  3. ASPIRIN [Concomitant]
     Dosage: 81 mg, UNK

REACTIONS (10)
  - Intestinal ischaemia [Recovered/Resolved]
  - Hypotension [Recovered/Resolved]
  - Gastrointestinal haemorrhage [Recovered/Resolved]
  - Large intestine perforation [Recovered/Resolved]
  - Abdominal discomfort [Recovered/Resolved]
  - Abdominal tenderness [Recovered/Resolved]
  - Abdominal pain [Recovered/Resolved]
  - Haemoglobin decreased [Recovered/Resolved]
  - Body temperature decreased [Recovered/Resolved]
  - Dizziness [Recovered/Resolved]
